FAERS Safety Report 6444189-1 (Version None)
Quarter: 2009Q4

REPORT INFORMATION
  Report Type: 
  Country: None (occurrence: None)
  Receive Date: 20091118
  Receipt Date: 20091116
  Transmission Date: 20100525
  Serious: Yes (Hospitalization, Other)
  Sender: FDA-Public Use
  Company Number: US-ROXANE LABORATORIES, INC.-2009-RO-01177RO

PATIENT
  Sex: Female

DRUGS (3)
  1. PREDNISONE [Suspect]
     Indication: RENAL TRANSPLANT
     Dates: start: 20060504
  2. CYCLOSPORINE [Suspect]
     Indication: RENAL TRANSPLANT
     Dosage: 300 MG
     Route: 048
     Dates: start: 20060503
  3. CELLCEPT [Suspect]
     Indication: RENAL TRANSPLANT
     Dates: start: 20060502

REACTIONS (4)
  - BLOOD CREATININE INCREASED [None]
  - DEHYDRATION [None]
  - ESCHERICHIA SEPSIS [None]
  - RENAL FAILURE ACUTE [None]
